FAERS Safety Report 11929799 (Version 1)
Quarter: 2016Q1

REPORT INFORMATION
  Report Type: Spontaneous
  Country: US (occurrence: None)
  Receive Date: 20160119
  Receipt Date: 20160119
  Transmission Date: 20160526
  Serious: Yes (Other)
  Sender: FDA-Public Use
  Company Number: None

PATIENT
  Age: 78 Year
  Sex: Male
  Weight: 65.77 kg

DRUGS (4)
  1. IMIQUIMOD 5% CREAM 24^5 E.FOUGERA + CO. [Suspect]
     Active Substance: IMIQUIMOD
     Indication: SQUAMOUS CELL CARCINOMA
     Dosage: 5% 0.25 G LIGHT COAL AROUND GLAUS 1XBID AM.
     Dates: start: 20150318, end: 20150928
  2. MULTIVITAMIN [Concomitant]
     Active Substance: VITAMINS
  3. ASPIRIN. [Concomitant]
     Active Substance: ASPIRIN
  4. TRAZODONE [Concomitant]
     Active Substance: TRAZODONE HYDROCHLORIDE

REACTIONS (6)
  - Penile vascular disorder [None]
  - Penile swelling [None]
  - Penile exfoliation [None]
  - Penile adhesion [None]
  - Penile pain [None]
  - Skin discolouration [None]

NARRATIVE: CASE EVENT DATE: 201507
